FAERS Safety Report 18481822 (Version 2)
Quarter: 2021Q1

REPORT INFORMATION
  Report Type: Spontaneous
  Country: US (occurrence: US)
  Receive Date: 20201109
  Receipt Date: 20210105
  Transmission Date: 20210419
  Serious: Yes (Hospitalization, Disabling)
  Sender: FDA-Public Use
  Company Number: US-TEVA-2020-US-1843828

PATIENT
  Age: 24 Year
  Sex: Male

DRUGS (3)
  1. DEXAMETHASONE. [Suspect]
     Active Substance: DEXAMETHASONE
     Indication: HAEMOPHAGOCYTIC LYMPHOHISTIOCYTOSIS
     Dosage: 16 MILLIGRAM DAILY; 28 DOSES, THEN TAPER
     Route: 065
  2. ETOPOSIDE. [Suspect]
     Active Substance: ETOPOSIDE
     Indication: HAEMOPHAGOCYTIC LYMPHOHISTIOCYTOSIS
     Dosage: PLANNED FOR 2 WEEKS
     Route: 065
  3. CAMPATH [Suspect]
     Active Substance: ALEMTUZUMAB
     Indication: HAEMOPHAGOCYTIC LYMPHOHISTIOCYTOSIS
     Route: 065

REACTIONS (15)
  - Enterococcal bacteraemia [Recovering/Resolving]
  - Hyperglycaemia [Recovering/Resolving]
  - Gait inability [Unknown]
  - Osteonecrosis [Recovering/Resolving]
  - Abscess limb [Recovering/Resolving]
  - Malnutrition [Unknown]
  - Pelvic abscess [Recovering/Resolving]
  - Osteomyelitis [Recovering/Resolving]
  - Physical deconditioning [Recovering/Resolving]
  - Gaucher^s disease type I [Recovering/Resolving]
  - Depression [Unknown]
  - Intestinal perforation [Recovering/Resolving]
  - Peritonitis [Recovering/Resolving]
  - Enterococcal infection [Recovering/Resolving]
  - Musculoskeletal discomfort [Unknown]
